FAERS Safety Report 8898386 (Version 3)
Quarter: 2014Q1

REPORT INFORMATION
  Report Type: Report from Study
  Country: US (occurrence: US)
  Receive Date: 20121109
  Receipt Date: 20140120
  Transmission Date: 20141002
  Serious: Yes (Hospitalization)
  Sender: FDA-Public Use
  Company Number: US-ACTELION-A-US2012-73648

PATIENT
  Age: 65 Year
  Sex: Female

DRUGS (3)
  1. TRACLEER [Suspect]
     Indication: PULMONARY ARTERIAL HYPERTENSION
     Dosage: UNK
     Route: 048
  2. COUMADIN [Concomitant]
  3. REMODULIN [Concomitant]

REACTIONS (8)
  - Irritable bowel syndrome [Unknown]
  - Diarrhoea [Unknown]
  - Abdominal discomfort [Unknown]
  - Catheter site infection [Unknown]
  - Abdominal pain upper [Unknown]
  - Catheter site inflammation [Unknown]
  - Catheter site discharge [Unknown]
  - Gastric perforation [Unknown]
